FAERS Safety Report 17860598 (Version 1)
Quarter: 2020Q2

REPORT INFORMATION
  Report Type: Spontaneous
  Country: US (occurrence: US)
  Receive Date: 20200604
  Receipt Date: 20200604
  Transmission Date: 20200714
  Serious: No
  Sender: FDA-Public Use
  Company Number: US-SA-2020SA139719

PATIENT

DRUGS (1)
  1. LANTUS SOLOSTAR [Suspect]
     Active Substance: INSULIN GLARGINE
     Dosage: 55 IU, QD
     Route: 065

REACTIONS (4)
  - Injection site pain [Unknown]
  - Product prescribing error [Unknown]
  - Wrong technique in device usage process [Unknown]
  - Device operational issue [Unknown]
